FAERS Safety Report 7358118-X (Version None)
Quarter: 2011Q1

REPORT INFORMATION
  Report Type: 
  Country: None (occurrence: None)
  Receive Date: 20110317
  Receipt Date: 20110304
  Transmission Date: 20110831
  Serious: Yes (Death)
  Sender: FDA-Public Use
  Company Number: KP-GENZYME-FLUD-1000356

PATIENT

DRUGS (8)
  1. FLUDARA [Suspect]
     Indication: STEM CELL TRANSPLANT
  2. CYCLOPHOSPHAMIDE [Suspect]
     Indication: STEM CELL TRANSPLANT
  3. THYMOGLOBULIN [Suspect]
     Indication: APLASTIC ANAEMIA
     Dosage: 2.5 MG/KG, QDX3
     Route: 042
  4. THYMOGLOBULIN [Suspect]
     Indication: STEM CELL TRANSPLANT
  5. FLUDARA [Suspect]
     Indication: APLASTIC ANAEMIA
     Dosage: 30 MG/M2, QDX4
     Route: 042
  6. CYCLOPHOSPHAMIDE [Suspect]
     Indication: APLASTIC ANAEMIA
     Dosage: 50 MG/KG, QDX4
     Route: 042
  7. METHOTREXATE [Concomitant]
     Indication: PROPHYLAXIS AGAINST GRAFT VERSUS HOST DISEASE
  8. MESNA [Concomitant]
     Indication: CYSTITIS HAEMORRHAGIC

REACTIONS (2)
  - SEPSIS [None]
  - EPSTEIN-BARR VIRUS ASSOCIATED LYMPHOPROLIFERATIVE DISORDER [None]
